FAERS Safety Report 5046888-5 (Version None)
Quarter: 2006Q2

REPORT INFORMATION
  Report Type: 
  Country: None (occurrence: None)
  Receive Date: 20060630
  Receipt Date: 20060620
  Transmission Date: 20061013
  Serious: Yes (Hospitalization)
  Sender: FDA-Public Use
  Company Number: 111115ISR

PATIENT
  Age: 49 Year
  Sex: Male

DRUGS (4)
  1. HALOPERIDOL [Suspect]
     Indication: SCHIZOPHRENIA
     Dates: start: 20051001, end: 20051103
  2. VALPROATE SODIUM [Concomitant]
  3. PHENYTOIN [Concomitant]
  4. SULPIRIDE [Concomitant]

REACTIONS (3)
  - CONVULSION [None]
  - GENERAL PHYSICAL HEALTH DETERIORATION [None]
  - PULMONARY EMBOLISM [None]
